FAERS Safety Report 8159702-6 (Version None)
Quarter: 2012Q1

REPORT INFORMATION
  Report Type: 
  Country: None (occurrence: None)
  Receive Date: 20120223
  Receipt Date: 20120208
  Transmission Date: 20120608
  Serious: Yes (Congenital Anomaly, Other)
  Sender: FDA-Public Use
  Company Number: DE-ARROW GEN-2012-02177

PATIENT

DRUGS (4)
  1. LAMOTRIGINE [Suspect]
     Indication: EPILEPSY
     Dosage: 375 MG, DAILY/TILL 28-SEP-2010: 150 MG/D, THEN SLOWLY INCREASED TO 375 MG/D
     Route: 064
     Dates: start: 20100708, end: 20110211
  2. FRISIUM [Suspect]
     Indication: EPILEPSY
     Dosage: 2.5 MG, TID
     Route: 064
     Dates: start: 20101217, end: 20110211
  3. THYROXIN [Concomitant]
     Indication: HYPOTHYROIDISM
     Dosage: UNK
     Route: 064
     Dates: start: 20100708, end: 20110211
  4. FOLIC ACID [Concomitant]
     Indication: PROPHYLAXIS OF NEURAL TUBE DEFECT
     Dosage: 5 MG, DAILY
     Route: 064
     Dates: start: 20100708

REACTIONS (6)
  - CARDIAC ANEURYSM [None]
  - VENTRICULAR SEPTAL DEFECT [None]
  - CONGENITAL CHOROID PLEXUS CYST [None]
  - ATRIAL SEPTAL DEFECT [None]
  - MYOCLONUS [None]
  - FEEDING DISORDER NEONATAL [None]
